FAERS Safety Report 13805888 (Version 1)
Quarter: 2017Q3

REPORT INFORMATION
  Report Type: Report from Study
  Country: BE (occurrence: BE)
  Receive Date: 20170728
  Receipt Date: 20170728
  Transmission Date: 20171127
  Serious: Yes (Other)
  Sender: FDA-Public Use
  Company Number: BE-SUN PHARMACEUTICAL INDUSTRIES LTD-2017RR-146128

PATIENT
  Sex: Female

DRUGS (12)
  1. EZETIMIBE. [Suspect]
     Active Substance: EZETIMIBE
     Dosage: 10 MG, DAILY
     Route: 065
     Dates: start: 200502
  2. SIMVASTATIN. [Suspect]
     Active Substance: SIMVASTATIN
     Indication: TYPE IIA HYPERLIPIDAEMIA
     Dosage: 20 MG, DAILY
     Route: 065
     Dates: start: 199903
  3. ATORVASTATIN [Suspect]
     Active Substance: ATORVASTATIN
     Dosage: 80 MG, DAILY
     Route: 065
     Dates: start: 200307
  4. EZETIMIBE. [Suspect]
     Active Substance: EZETIMIBE
     Dosage: 10 MG, DAILY
     Route: 065
     Dates: start: 200505
  5. CHOLESTYRAMINE. [Suspect]
     Active Substance: CHOLESTYRAMINE
     Dosage: 4 G, DAILY
     Route: 065
     Dates: start: 200302
  6. CHOLESTYRAMINE. [Suspect]
     Active Substance: CHOLESTYRAMINE
     Dosage: 4 G, DAILY
     Route: 065
     Dates: start: 200502
  7. ATORVASTATIN [Suspect]
     Active Substance: ATORVASTATIN
     Indication: TYPE IIA HYPERLIPIDAEMIA
     Dosage: 60 MG, DAILY
     Route: 065
     Dates: start: 200302
  8. ATORVASTATIN [Suspect]
     Active Substance: ATORVASTATIN
     Dosage: 80 MG, DAILY
     Route: 065
     Dates: start: 200502
  9. ROSUVASTATIN. [Suspect]
     Active Substance: ROSUVASTATIN
     Indication: TYPE IIA HYPERLIPIDAEMIA
     Dosage: 40 MG, DAILY
     Route: 065
     Dates: start: 200505
  10. CHOLESTYRAMINE. [Suspect]
     Active Substance: CHOLESTYRAMINE
     Indication: TYPE IIA HYPERLIPIDAEMIA
     Dosage: 6 G, DAILY
     Route: 065
     Dates: start: 199903
  11. EZETIMIBE. [Suspect]
     Active Substance: EZETIMIBE
     Indication: TYPE IIA HYPERLIPIDAEMIA
     Dosage: 10 MG, DAILY
     Route: 065
     Dates: start: 200307
  12. CHOLESTYRAMINE. [Suspect]
     Active Substance: CHOLESTYRAMINE
     Dosage: 4 G, DAILY
     Route: 065
     Dates: start: 200505

REACTIONS (1)
  - Drug effect incomplete [Unknown]
